FAERS Safety Report 26122626 (Version 2)
Quarter: 2025Q4

REPORT INFORMATION
  Report Type: Spontaneous
  Country: US (occurrence: US)
  Receive Date: 20251204
  Receipt Date: 20251224
  Transmission Date: 20260118
  Serious: No
  Sender: PFIZER
  Company Number: US-PFIZER INC-PV202500141287

PATIENT
  Age: 30 Year
  Sex: Female

DRUGS (3)
  1. SULFASALAZINE [Interacting]
     Active Substance: SULFASALAZINE
     Indication: Crohn^s disease
     Dosage: 500 MG/1500 MG (3 TABLETS) TWICE A DAY (AS NEEDED)
     Dates: start: 19931124
  2. SULFASALAZINE [Interacting]
     Active Substance: SULFASALAZINE
     Indication: Colitis ulcerative
  3. FOLIC ACID [Interacting]
     Active Substance: FOLIC ACID
     Dosage: 10 MG, ONCE A DAY

REACTIONS (2)
  - Drug interaction [Unknown]
  - Maternal exposure during pregnancy [Unknown]

NARRATIVE: CASE EVENT DATE: 20080101
